FAERS Safety Report 6691781-5 (Version None)
Quarter: 2010Q2

REPORT INFORMATION
  Report Type: 
  Country: None (occurrence: None)
  Receive Date: 20100422
  Receipt Date: 20090806
  Transmission Date: 20101027
  Serious: No
  Sender: FDA-Public Use
  Company Number: US-ASTRAZENECA-2009SE07087

PATIENT
  Sex: Female
  Weight: 97.5 kg

DRUGS (5)
  1. TOPROL-XL [Suspect]
     Route: 048
  2. CRESTOR [Concomitant]
  3. ASPIRIN [Concomitant]
  4. VITAMIN D [Concomitant]
  5. CALCIUM [Concomitant]

REACTIONS (3)
  - ALOPECIA [None]
  - FATIGUE [None]
  - ILL-DEFINED DISORDER [None]
